FAERS Safety Report 5470891-4 (Version None)
Quarter: 2007Q3

REPORT INFORMATION
  Report Type: 
  Country: None (occurrence: None)
  Receive Date: 20070925
  Receipt Date: 20070910
  Transmission Date: 20080115
  Serious: Yes (Death)
  Sender: FDA-Public Use
  Company Number: 2007R3-09986

PATIENT
  Sex: Female

DRUGS (1)
  1. AMOXICILLIN AND CLAVULANATE POTASSIUM (AMOXICILLIN) INJECTION, 1.2G [Suspect]
     Dosage: 1.2 G, SINGLE; INTRAVENOUS
     Route: 042

REACTIONS (9)
  - ANAPHYLACTIC REACTION [None]
  - BLOOD PRESSURE IMMEASURABLE [None]
  - CARDIAC ARREST [None]
  - CIRCULATORY COLLAPSE [None]
  - CONVULSION [None]
  - FALL [None]
  - PULSE ABSENT [None]
  - RESPIRATORY ARREST [None]
  - SKIN BURNING SENSATION [None]
